FAERS Safety Report 4805407-6 (Version None)
Quarter: 2005Q4

REPORT INFORMATION
  Report Type: 
  Country: None (occurrence: None)
  Receive Date: 20051017
  Receipt Date: 20051007
  Transmission Date: 20060501
  Serious: Yes (Hospitalization, Other)
  Sender: FDA-Public Use
  Company Number: ZICO001313

PATIENT
  Age: 53 Year
  Sex: Male

DRUGS (3)
  1. PRIALT [Suspect]
     Dosage: INTRATHECAL
     Route: 037
     Dates: start: 20020401, end: 20050907
  2. HYDROCHLOROTHIAZIDE [Suspect]
     Indication: HYPERTENSION
  3. MS CONTIIN (MORPHINE) [Concomitant]

REACTIONS (2)
  - BLOOD SODIUM DECREASED [None]
  - NAUSEA [None]
